FAERS Safety Report 18361729 (Version 2)
Quarter: 2020Q4

REPORT INFORMATION
  Report Type: Report from Study
  Country: US (occurrence: US)
  Receive Date: 20201008
  Receipt Date: 20201202
  Transmission Date: 20210114
  Serious: No
  Sender: FDA-Public Use
  Company Number: NVSC2020US271755

PATIENT
  Sex: Female

DRUGS (4)
  1. COSENTYX [Suspect]
     Active Substance: SECUKINUMAB
     Indication: PSORIASIS
     Dosage: UNK(WEEK 0)
     Route: 065
     Dates: start: 20200919
  2. COSENTYX [Suspect]
     Active Substance: SECUKINUMAB
     Dosage: UNK(WEEK 03)
     Route: 065
     Dates: start: 20201003
  3. COSENTYX [Suspect]
     Active Substance: SECUKINUMAB
     Indication: PSORIASIS
     Route: 058
  4. COSENTYX [Suspect]
     Active Substance: SECUKINUMAB
     Indication: PSORIASIS
     Dosage: UNK(WEEK 1)
     Route: 065
     Dates: start: 20200926

REACTIONS (2)
  - Hunger [Unknown]
  - Weight increased [Unknown]
